FAERS Safety Report 7626472-7 (Version None)
Quarter: 2011Q3

REPORT INFORMATION
  Report Type: 
  Country: None (occurrence: None)
  Receive Date: 20110721
  Receipt Date: 20110713
  Transmission Date: 20111222
  Serious: Yes (Other)
  Sender: FDA-Public Use
  Company Number: US-ROCHE-772975

PATIENT
  Sex: Male
  Weight: 53.1 kg

DRUGS (1)
  1. ACCUTANE [Suspect]
     Indication: ACNE
     Route: 065
     Dates: start: 19990426, end: 19990901

REACTIONS (13)
  - COLITIS ULCERATIVE [None]
  - INFLAMMATORY BOWEL DISEASE [None]
  - PARONYCHIA [None]
  - ALANINE AMINOTRANSFERASE INCREASED [None]
  - BLOOD ALKALINE PHOSPHATASE [None]
  - CHOLANGITIS SCLEROSING [None]
  - DRY SKIN [None]
  - PANIC ATTACK [None]
  - MUCOSAL DRYNESS [None]
  - DEPRESSION [None]
  - RED BLOOD CELL SEDIMENTATION RATE INCREASED [None]
  - EMOTIONAL DISTRESS [None]
  - ASPARTATE AMINOTRANSFERASE INCREASED [None]
